FAERS Safety Report 23260453 (Version 3)
Quarter: 2023Q4

REPORT INFORMATION
  Report Type: Spontaneous
  Country: IN (occurrence: IN)
  Receive Date: 20231205
  Receipt Date: 20231212
  Transmission Date: 20240109
  Serious: Yes (Hospitalization, Other)
  Sender: FDA-Public Use
  Company Number: IN-ALKEM LABORATORIES LIMITED-IN-ALKEM-2023-14671

PATIENT
  Age: 6 Decade
  Sex: Male

DRUGS (2)
  1. PREGABALIN [Suspect]
     Active Substance: PREGABALIN
     Indication: Neuralgia
     Dosage: 150 MG/DAY, 4 WEEKS AGO
     Route: 065
  2. PREGABALIN [Suspect]
     Active Substance: PREGABALIN
     Dosage: 2 G/DAY
     Route: 065

REACTIONS (8)
  - Tachycardia [Recovered/Resolved]
  - Withdrawal syndrome [Unknown]
  - Delirium [Recovered/Resolved]
  - Intentional product misuse [Unknown]
  - Dysarthria [Recovered/Resolved]
  - Somnolence [Recovered/Resolved]
  - Insomnia [Unknown]
  - Anxiety [Unknown]
